FAERS Safety Report 8010368-5 (Version None)
Quarter: 2011Q4

REPORT INFORMATION
  Report Type: 
  Country: None (occurrence: None)
  Receive Date: 20111228
  Receipt Date: 20111215
  Transmission Date: 20120403
  Serious: Yes (Life-Threatening, Other)
  Sender: FDA-Public Use
  Company Number: FR-ELI_LILLY_AND_COMPANY-FR201112005168

PATIENT
  Age: 73 Year
  Sex: Female

DRUGS (1)
  1. RALOXIFENE [Suspect]
     Indication: OSTEOPOROSIS PROPHYLAXIS
     Dosage: UNK
     Dates: start: 20080101, end: 20110101

REACTIONS (1)
  - UTERINE CANCER [None]
